FAERS Safety Report 9586496 (Version 2)
Quarter: 2013Q4

REPORT INFORMATION
  Report Type: Report from Study
  Country: TH (occurrence: TH)
  Receive Date: 20131003
  Receipt Date: 20131022
  Transmission Date: 20140711
  Serious: Yes (Death, Hospitalization)
  Sender: FDA-Public Use
  Company Number: PHHY2013TH110158

PATIENT
  Age: 40 Year
  Sex: Male

DRUGS (1)
  1. TASIGNA [Suspect]
     Indication: CHRONIC MYELOID LEUKAEMIA
     Dosage: 40 MG, BID
     Route: 048

REACTIONS (6)
  - Death [Fatal]
  - Cerebral haemorrhage [Unknown]
  - Gingival bleeding [Unknown]
  - Aphasia [Unknown]
  - Body temperature increased [Unknown]
  - Platelet count decreased [Unknown]
